FAERS Safety Report 17929467 (Version 1)
Quarter: 2020Q2

REPORT INFORMATION
  Report Type: Spontaneous
  Country: US (occurrence: US)
  Receive Date: 20200623
  Receipt Date: 20200623
  Transmission Date: 20200714
  Serious: Yes (Hospitalization)
  Sender: FDA-Public Use
  Company Number: None

PATIENT
  Sex: Male
  Weight: 12.4 kg

DRUGS (6)
  1. DAUNORUBICIN [Concomitant]
     Active Substance: DAUNORUBICIN
  2. METHOTREXATE. [Concomitant]
     Active Substance: METHOTREXATE
  3. ONCASPAR [Suspect]
     Active Substance: PEGASPARGASE
  4. CYTARABINE (63878) [Suspect]
     Active Substance: CYTARABINE
  5. DEXAMETHASONE. [Suspect]
     Active Substance: DEXAMETHASONE
  6. VINCRISTINE SULFATE. [Concomitant]
     Active Substance: VINCRISTINE SULFATE

REACTIONS (4)
  - Febrile neutropenia [None]
  - Puncture site infection [None]
  - Staphylococcus test positive [None]
  - Bacteraemia [None]

NARRATIVE: CASE EVENT DATE: 20200614
